FAERS Safety Report 4460896-4 (Version None)
Quarter: 2004Q3

REPORT INFORMATION
  Report Type: 
  Country: None (occurrence: None)
  Receive Date: 20040928
  Receipt Date: 20040608
  Transmission Date: 20050211
  Serious: No
  Sender: FDA-Public Use
  Company Number: US-GLAXOSMITHKLINE-A0513801A

PATIENT
  Age: 72 Year
  Sex: Female
  Weight: 70.5 kg

DRUGS (3)
  1. ADVAIR DISKUS 100/50 [Suspect]
     Indication: ASTHMA
     Dosage: 1PUFF TWICE PER DAY
     Route: 055
     Dates: start: 20040607, end: 20040609
  2. MULTIVITAMIN [Concomitant]
  3. SYNTHROID [Concomitant]

REACTIONS (2)
  - CHAPPED LIPS [None]
  - GLOSSODYNIA [None]
